FAERS Safety Report 6881651-1 (Version None)
Quarter: 2010Q3

REPORT INFORMATION
  Report Type: 
  Country: None (occurrence: None)
  Receive Date: 20100729
  Receipt Date: 20100720
  Transmission Date: 20110219
  Serious: No
  Sender: FDA-Public Use
  Company Number: US-BIOGENIDEC-2010BI025205

PATIENT
  Age: 46 Year
  Sex: Male

DRUGS (2)
  1. TYSABRI [Suspect]
     Indication: MULTIPLE SCLEROSIS
     Route: 042
     Dates: start: 20070110, end: 20080703
  2. TYSABRI [Suspect]
     Route: 042
     Dates: start: 20100318

REACTIONS (4)
  - ASTHENIA [None]
  - COORDINATION ABNORMAL [None]
  - DRUG INEFFECTIVE [None]
  - GAIT DISTURBANCE [None]
